FAERS Safety Report 16607926 (Version 1)
Quarter: 2019Q3

REPORT INFORMATION
  Report Type: Spontaneous
  Country: JP (occurrence: JP)
  Receive Date: 20190722
  Receipt Date: 20190722
  Transmission Date: 20191004
  Serious: Yes (Other)
  Sender: FDA-Public Use
  Company Number: JP-BEH-2019104606

PATIENT

DRUGS (1)
  1. ALBUMINAR [Suspect]
     Active Substance: ALBUMIN HUMAN
     Dosage: UNK
     Route: 065

REACTIONS (2)
  - Hepatitis C antibody positive [Unknown]
  - Suspected transmission of an infectious agent via product [Unknown]
